FAERS Safety Report 23704323 (Version 1)
Quarter: 2024Q2

REPORT INFORMATION
  Report Type: Spontaneous
  Country: JP (occurrence: JP)
  Receive Date: 20240404
  Receipt Date: 20240404
  Transmission Date: 20240715
  Serious: Yes (Life-Threatening, Hospitalization)
  Sender: FDA-Public Use
  Company Number: JP-STERISCIENCE B.V.-2024-ST-000377

PATIENT
  Age: 80 Year
  Sex: Male

DRUGS (4)
  1. AMPICILLIN AND SULBACTAM [Suspect]
     Active Substance: AMPICILLIN SODIUM\SULBACTAM SODIUM
     Indication: Bacterial infection
     Dosage: 4.5 GRAM, QD
     Route: 065
  2. MEROPENEM [Suspect]
     Active Substance: MEROPENEM
     Indication: Bacterial infection
     Dosage: 2 GRAM, QD
     Route: 065
  3. CEFAZOLIN SODIUM [Suspect]
     Active Substance: CEFAZOLIN SODIUM
     Indication: Bacterial infection
     Dosage: 2 GRAM, QD
     Route: 065
  4. Immunoglobulin [Concomitant]
     Indication: Immunoglobulin therapy
     Dosage: UNK
     Route: 042

REACTIONS (1)
  - Dysbiosis [None]
